APPROVED DRUG PRODUCT: HYDRALAZINE HYDROCHLORIDE
Active Ingredient: HYDRALAZINE HYDROCHLORIDE
Strength: 10MG
Dosage Form/Route: TABLET;ORAL
Application: A088728 | Product #001
Applicant: MUTUAL PHARMACEUTICAL CO INC
Approved: Apr 11, 1985 | RLD: No | RS: No | Type: DISCN